FAERS Safety Report 16135021 (Version 1)
Quarter: 2019Q1

REPORT INFORMATION
  Report Type: Spontaneous
  Country: EG (occurrence: EG)
  Receive Date: 20190329
  Receipt Date: 20190329
  Transmission Date: 20190418
  Serious: Yes (Other)
  Sender: FDA-Public Use
  Company Number: EG-BAXTER-2019BAX005377

PATIENT
  Age: 49 Year
  Sex: Female

DRUGS (7)
  1. ENDOXAN 1G [Suspect]
     Active Substance: CYCLOPHOSPHAMIDE
     Indication: HEPATITIS C
     Route: 048
  2. RIBAVIRIN. [Suspect]
     Active Substance: RIBAVIRIN
     Indication: GLOMERULONEPHRITIS MEMBRANOPROLIFERATIVE
  3. RIBAVIRIN. [Suspect]
     Active Substance: RIBAVIRIN
     Indication: HEPATITIS C
     Route: 065
  4. ENDOXAN 1G [Suspect]
     Active Substance: CYCLOPHOSPHAMIDE
     Indication: CRYOGLOBULINAEMIA
  5. RIBAVIRIN. [Suspect]
     Active Substance: RIBAVIRIN
     Indication: CRYOGLOBULINAEMIA
  6. ENDOXAN 1G [Suspect]
     Active Substance: CYCLOPHOSPHAMIDE
     Indication: GLOMERULONEPHRITIS MEMBRANOPROLIFERATIVE
  7. PEGYLATED INTERFERON NOS [Suspect]
     Active Substance: PEGINTERFERON ALFA-2A OR PEGINTERFERON ALFA-2B OR PEGINTERFERON BETA-1A OR PEGINTERFERON LAMBDA-1A
     Indication: CRYOGLOBULINAEMIA
     Route: 065

REACTIONS (3)
  - Drug ineffective [Unknown]
  - Pyrexia [Recovered/Resolved]
  - Leukopenia [Unknown]
